FAERS Safety Report 7742028-X (Version None)
Quarter: 2011Q3

REPORT INFORMATION
  Report Type: 
  Country: None (occurrence: None)
  Receive Date: 20110912
  Receipt Date: 20110906
  Transmission Date: 20111222
  Serious: Yes (Other)
  Sender: FDA-Public Use
  Company Number: DE-JNJFOC-20110902185

PATIENT
  Age: 87 Year
  Sex: Female

DRUGS (2)
  1. OXYCODONE HCL [Concomitant]
     Dosage: 2 * 50 MG
     Route: 048
  2. PALEXIA RETARD [Suspect]
     Indication: PRODUCT USED FOR UNKNOWN INDICATION
     Dosage: 2 * 50 MG
     Route: 048
     Dates: start: 20110401, end: 20110401

REACTIONS (1)
  - CONFUSIONAL STATE [None]
